FAERS Safety Report 6286250-0 (Version None)
Quarter: 2009Q3

REPORT INFORMATION
  Report Type: 
  Country: None (occurrence: None)
  Receive Date: 20090716
  Receipt Date: 20090209
  Transmission Date: 20100115
  Serious: Yes (Hospitalization)
  Sender: FDA-Public Use
  Company Number: 2008BI023190

PATIENT
  Age: 42 Year
  Sex: Female
  Weight: 68.0396 kg

DRUGS (7)
  1. AVONEX [Suspect]
     Indication: MULTIPLE SCLEROSIS
     Dosage: 30 UG;QW;IM
     Route: 030
     Dates: start: 20050401, end: 20070101
  2. BACLOFEN [Concomitant]
  3. SKELAXIN [Concomitant]
  4. MOBIC [Concomitant]
  5. OXYCONTIN [Concomitant]
  6. MAXALT [Concomitant]
  7. RELPAX [Concomitant]

REACTIONS (2)
  - MIGRAINE [None]
  - MULTIPLE SCLEROSIS RELAPSE [None]
